FAERS Safety Report 7413279-9 (Version None)
Quarter: 2011Q2

REPORT INFORMATION
  Report Type: 
  Country: None (occurrence: None)
  Receive Date: 20110413
  Receipt Date: 20110408
  Transmission Date: 20111010
  Serious: Yes (Other)
  Sender: FDA-Public Use
  Company Number: JP-PFIZER INC-2011077560

PATIENT
  Age: 77 Year
  Sex: Male
  Weight: 70 kg

DRUGS (5)
  1. NORVASC [Suspect]
     Dosage: 5 MG, 1X/DAY
     Route: 048
     Dates: start: 20100601
  2. GASLON [Concomitant]
     Dosage: 4 MG, 1X/DAY
     Dates: start: 20100601
  3. BLOPRESS [Suspect]
     Dosage: 4 MG, 1X/DAY
     Route: 048
     Dates: start: 20070101
  4. LYRICA [Suspect]
     Indication: ANALGESIC THERAPY
     Dosage: 75 MG, 1X/DAY
     Route: 048
     Dates: start: 20110301, end: 20110309
  5. ASPIRIN [Concomitant]
     Dosage: 100 MG, 1X/DAY
     Dates: start: 20100601

REACTIONS (2)
  - FALL [None]
  - DIZZINESS [None]
